FAERS Safety Report 8416990-6 (Version None)
Quarter: 2012Q2

REPORT INFORMATION
  Report Type: 
  Country: None (occurrence: None)
  Receive Date: 20120606
  Receipt Date: 20120530
  Transmission Date: 20120825
  Serious: Yes (Other)
  Sender: FDA-Public Use
  Company Number: US-BAYER-2012-055097

PATIENT
  Age: 24 Year
  Sex: Male
  Weight: 77.098 kg

DRUGS (1)
  1. ALEVE (CAPLET) [Suspect]
     Dosage: 2 DF, PRN
     Route: 048
     Dates: start: 20120301, end: 20120301

REACTIONS (6)
  - SCOTOMA [None]
  - HYPERSENSITIVITY [None]
  - SWELLING FACE [None]
  - AURICULAR SWELLING [None]
  - URTICARIA [None]
  - PRURITUS [None]
